FAERS Safety Report 12160699 (Version 3)
Quarter: 2016Q3

REPORT INFORMATION
  Report Type: Report from Study
  Country: US (occurrence: US)
  Receive Date: 20160308
  Receipt Date: 20160707
  Transmission Date: 20161109
  Serious: Yes (Other)
  Sender: FDA-Public Use
  Company Number: US-B.I. PHARMACEUTICALS,INC./RIDGEFIELD-2015-BI-60339BP

PATIENT
  Sex: Male

DRUGS (3)
  1. OFEV [Suspect]
     Active Substance: NINTEDANIB
     Indication: IDIOPATHIC PULMONARY FIBROSIS
     Dosage: 300 MG
     Route: 048
     Dates: start: 20150618
  2. OFEV [Suspect]
     Active Substance: NINTEDANIB
     Dosage: 1 ANZ
     Route: 048
  3. OFEV [Suspect]
     Active Substance: NINTEDANIB
     Dosage: 2 ANZ
     Route: 048

REACTIONS (11)
  - Dyspnoea exertional [Unknown]
  - Microcytic anaemia [Unknown]
  - Dyspnoea [Unknown]
  - Dehydration [Unknown]
  - Diarrhoea [Recovered/Resolved]
  - Cardiac failure congestive [Unknown]
  - Diarrhoea [Unknown]
  - Oedema [Unknown]
  - Productive cough [Recovered/Resolved]
  - Hypersensitivity [Unknown]
  - Cough [Recovered/Resolved]
